FAERS Safety Report 5140120-X (Version None)
Quarter: 2006Q4

REPORT INFORMATION
  Report Type: 
  Country: None (occurrence: None)
  Receive Date: 20061031
  Receipt Date: 20060830
  Transmission Date: 20070319
  Serious: Yes (Hospitalization)
  Sender: FDA-Public Use
  Company Number: JP-ROCHE-461404

PATIENT
  Age: 48 Year
  Sex: Male

DRUGS (5)
  1. PANALDINE [Suspect]
     Indication: MYOCARDIAL INFARCTION
     Route: 048
     Dates: start: 20060621, end: 20060714
  2. LIPITOR [Suspect]
     Indication: HYPERLIPIDAEMIA
     Route: 048
     Dates: start: 20060621, end: 20060714
  3. ASPIRIN [Concomitant]
     Route: 048
  4. ARTIST [Concomitant]
     Route: 048
  5. GASTER D [Concomitant]
     Route: 048

REACTIONS (4)
  - HEADACHE [None]
  - HEPATIC FUNCTION ABNORMAL [None]
  - HEPATOCELLULAR DAMAGE [None]
  - PYREXIA [None]
